FAERS Safety Report 18175495 (Version 13)
Quarter: 2023Q1

REPORT INFORMATION
  Report Type: Spontaneous
  Country: US (occurrence: US)
  Receive Date: 20200820
  Receipt Date: 20230113
  Transmission Date: 20230418
  Serious: No
  Sender: FDA-Public Use
  Company Number: US-PFIZER INC-2020320971

PATIENT
  Age: 72 Year
  Sex: Female
  Weight: 53.07 kg

DRUGS (6)
  1. PREMARIN [Suspect]
     Active Substance: ESTROGENS, CONJUGATED
     Indication: Bladder operation
     Dosage: APPLY VAGINALLY ON WED AND SAT
     Route: 067
  2. PREMARIN [Suspect]
     Active Substance: ESTROGENS, CONJUGATED
     Indication: Bladder prolapse
     Dosage: 0.5 G, DAILY (AFTER 365 DOSES)
     Route: 067
     Dates: start: 20221205
  3. PREMARIN [Suspect]
     Active Substance: ESTROGENS, CONJUGATED
     Indication: Pelvic organ prolapse
  4. PREMARIN [Suspect]
     Active Substance: ESTROGENS, CONJUGATED
     Indication: Prolapse repair
  5. PREMARIN [Suspect]
     Active Substance: ESTROGENS, CONJUGATED
     Indication: Vaginal prolapse
  6. PREMARIN [Suspect]
     Active Substance: ESTROGENS, CONJUGATED
     Indication: Vulvovaginal dryness

REACTIONS (5)
  - Confusional state [Unknown]
  - Thinking abnormal [Unknown]
  - COVID-19 [Recovered/Resolved]
  - Product prescribing error [Unknown]
  - Off label use [Unknown]
